FAERS Safety Report 4700189-0 (Version None)
Quarter: 2005Q2

REPORT INFORMATION
  Report Type: 
  Country: None (occurrence: None)
  Receive Date: 20050627
  Receipt Date: 20050404
  Transmission Date: 20051028
  Serious: Yes (Hospitalization)
  Sender: FDA-Public Use
  Company Number: PHBS2005JP04814

PATIENT
  Age: 63 Year
  Sex: Male
  Weight: 60 kg

DRUGS (13)
  1. LIORESAL [Suspect]
     Indication: SPASTIC PARALYSIS
     Dosage: 5 MG, TID
     Route: 048
     Dates: start: 20050331, end: 20050401
  2. LASIX [Concomitant]
     Dosage: 80 MG/DAY
     Route: 048
  3. ZANTAC [Concomitant]
     Indication: GASTRIC ULCER
     Dosage: 150 MG/DAY
     Route: 048
     Dates: start: 20041222
  4. AMLODIN [Concomitant]
     Dosage: 10 MG/DAY
     Route: 048
  5. ANPLAG [Concomitant]
     Indication: ATHEROSCLEROSIS OBLITERANS
     Dosage: 200 MG/DAY
     Route: 048
     Dates: start: 20050119
  6. CALCIUM CARBONATE [Concomitant]
     Indication: HYPERPHOSPHATAEMIA
     Dosage: 3 G/DAY
     Route: 048
     Dates: start: 20041222
  7. NEUROVITAN [Concomitant]
     Dosage: 3 DF/DAY
     Route: 048
  8. RENAGEL [Concomitant]
     Indication: HYPERPHOSPHATAEMIA
     Dosage: 750 MG/DAY
     Route: 048
     Dates: start: 20041222
  9. CILOSTATE [Concomitant]
     Indication: ATHEROSCLEROSIS OBLITERANS
     Dosage: 100 MG/DAY
     Route: 048
     Dates: start: 20041222
  10. DIOVAN [Concomitant]
     Indication: HYPERTENSION
     Dosage: 80 MG/DAY
     Route: 048
     Dates: start: 20050224
  11. ALFAROL [Concomitant]
     Indication: HYPERPARATHYROIDISM SECONDARY
     Dosage: 0.5 UG/DAY
     Route: 048
     Dates: start: 20041222
  12. TRYPTANOL [Concomitant]
     Indication: DEPRESSION
     Dosage: 40 MG/DAY
     Route: 048
     Dates: start: 20050104
  13. TEGRETOL [Concomitant]
     Indication: CONVULSION
     Dosage: 400 MG/DAY
     Route: 048
     Dates: start: 20050111

REACTIONS (1)
  - DEPRESSED LEVEL OF CONSCIOUSNESS [None]
